FAERS Safety Report 5853051-4 (Version None)
Quarter: 2008Q3

REPORT INFORMATION
  Report Type: 
  Country: None (occurrence: None)
  Receive Date: 20080821
  Receipt Date: 20080805
  Transmission Date: 20090109
  Serious: Yes (Life-Threatening, Disabling, Other)
  Sender: FDA-Public Use
  Company Number: GB-ASTRAZENECA-2008GB01498

PATIENT
  Sex: Female
  Weight: 50 kg

DRUGS (4)
  1. SEROQUEL [Suspect]
     Dosage: INITIALLY GIVEN IN SMALL DOSE
     Route: 048
     Dates: start: 20050101
  2. SEROQUEL [Suspect]
     Route: 048
     Dates: start: 20080101
  3. SEROQUEL [Suspect]
     Route: 048
  4. SEROQUEL [Suspect]
     Route: 048
     Dates: end: 20080313

REACTIONS (15)
  - ANOREXIA [None]
  - APHASIA [None]
  - ARTHRALGIA [None]
  - DYSPNOEA [None]
  - EAR PAIN [None]
  - HEADACHE [None]
  - MYALGIA [None]
  - NERVE INJURY [None]
  - NEUROLEPTIC MALIGNANT SYNDROME [None]
  - NUCHAL RIGIDITY [None]
  - PAIN [None]
  - PARAESTHESIA [None]
  - RASH GENERALISED [None]
  - TONGUE BITING [None]
  - WITHDRAWAL SYNDROME [None]
